FAERS Safety Report 4954719-4 (Version None)
Quarter: 2006Q1

REPORT INFORMATION
  Report Type: 
  Country: None (occurrence: None)
  Receive Date: 20060131
  Receipt Date: 20051130
  Transmission Date: 20060701
  Serious: Yes (Hospitalization)
  Sender: FDA-Public Use
  Company Number: 05P-163-0318373-00

PATIENT
  Age: 60 Year
  Sex: Female

DRUGS (1)
  1. OMNICEF [Suspect]
     Indication: PHARYNGITIS
     Dosage: 300 MG, 2 IN 1 D, PER ORAL
     Route: 048
     Dates: start: 20051101, end: 20051107

REACTIONS (1)
  - CLOSTRIDIUM DIFFICILE COLITIS [None]
